FAERS Safety Report 8490139-6 (Version None)
Quarter: 2012Q3

REPORT INFORMATION
  Report Type: 
  Country: None (occurrence: None)
  Receive Date: 20120705
  Receipt Date: 20120625
  Transmission Date: 20120928
  Serious: Yes (Other)
  Sender: FDA-Public Use
  Company Number: US-ASTRAZENECA-2012SE42994

PATIENT
  Age: 48 Year
  Sex: Female

DRUGS (8)
  1. LOVASTATIN [Concomitant]
  2. LEVOTHYROXINE SODIUM [Concomitant]
  3. NEXIUM [Suspect]
     Route: 048
  4. PHENTERMINE [Concomitant]
  5. LORTAB [Concomitant]
  6. CELEBREX [Concomitant]
  7. SOMA [Concomitant]
  8. EFFEXOR XR [Concomitant]

REACTIONS (6)
  - BACK PAIN [None]
  - NECK PAIN [None]
  - PAIN IN EXTREMITY [None]
  - INTERVERTEBRAL DISC PROTRUSION [None]
  - MUSCULOSKELETAL PAIN [None]
  - FALL [None]
